FAERS Safety Report 17653714 (Version 1)
Quarter: 2020Q2

REPORT INFORMATION
  Report Type: Spontaneous
  Country: US (occurrence: US)
  Receive Date: 20200410
  Receipt Date: 20200410
  Transmission Date: 20200713
  Serious: No
  Sender: FDA-Public Use
  Company Number: US-SA-2020SA090368

PATIENT
  Age: 69 Year
  Sex: Male

DRUGS (6)
  1. ATORVASTATIN [Concomitant]
     Active Substance: ATORVASTATIN
  2. FLUOXETINE [Concomitant]
     Active Substance: FLUOXETINE HYDROCHLORIDE
  3. FLUTICASONE. [Concomitant]
     Active Substance: FLUTICASONE
  4. DUPIXENT [Suspect]
     Active Substance: DUPILUMAB
     Indication: DERMATITIS ATOPIC
     Dosage: 200 MG, QOW
     Route: 058
     Dates: start: 20200227
  5. LISINOPRIL. [Concomitant]
     Active Substance: LISINOPRIL
  6. RISEDRONATE [Concomitant]
     Active Substance: RISEDRONATE SODIUM

REACTIONS (2)
  - Product use issue [Unknown]
  - Dermatitis atopic [Unknown]

NARRATIVE: CASE EVENT DATE: 20200227
